FAERS Safety Report 6169422-5 (Version None)
Quarter: 2009Q2

REPORT INFORMATION
  Report Type: 
  Country: None (occurrence: None)
  Receive Date: 20090428
  Receipt Date: 20090417
  Transmission Date: 20091009
  Serious: Yes (Death, Hospitalization, Other)
  Sender: FDA-Public Use
  Company Number: PHHY2008JP02087

PATIENT

DRUGS (1)
  1. GLEEVEC [Suspect]
     Indication: GASTROINTESTINAL STROMAL TUMOUR
     Dosage: UNK
     Route: 048
     Dates: start: 20071001, end: 20080208

REACTIONS (17)
  - ANORECTAL DISORDER [None]
  - ANOREXIA [None]
  - BACK PAIN [None]
  - BLADDER DISORDER [None]
  - CONDITION AGGRAVATED [None]
  - GENERAL PHYSICAL HEALTH DETERIORATION [None]
  - LEUKOCYTOSIS [None]
  - MALIGNANT NEOPLASM PROGRESSION [None]
  - MASS [None]
  - MASS EXCISION [None]
  - MULTIPLE MYELOMA [None]
  - NAUSEA [None]
  - PARALYSIS [None]
  - RACHIOTOMY [None]
  - RIB FRACTURE [None]
  - SPINAL CORD DISORDER [None]
  - SPINAL LAMINECTOMY [None]
